FAERS Safety Report 10192353 (Version 1)
Quarter: 2014Q2

REPORT INFORMATION
  Report Type: Spontaneous
  Country: US (occurrence: US)
  Receive Date: 20140523
  Receipt Date: 20140523
  Transmission Date: 20141212
  Serious: Yes (Hospitalization)
  Sender: FDA-Public Use
  Company Number: US-ACTELION-A-NJ2014-99083

PATIENT
  Age: 55 Year
  Sex: Female

DRUGS (2)
  1. OPSUMIT [Suspect]
     Indication: PULMONARY ARTERIAL HYPERTENSION
     Dosage: 10 MG, UNK
     Route: 048
     Dates: start: 20140107
  2. TYVASO [Concomitant]
     Dosage: 9 BREATHS QID
     Dates: start: 20140421

REACTIONS (4)
  - Pulmonary endarterectomy [Unknown]
  - Post procedural haemorrhage [Recovered/Resolved]
  - Tracheostomy [Recovered/Resolved]
  - Convulsion [Recovered/Resolved]
